FAERS Safety Report 6904285-9 (Version None)
Quarter: 2010Q3

REPORT INFORMATION
  Report Type: 
  Country: None (occurrence: None)
  Receive Date: 20100804
  Receipt Date: 20090421
  Transmission Date: 20110219
  Serious: No
  Sender: FDA-Public Use
  Company Number: US-PFIZER INC-2009173515

PATIENT

DRUGS (6)
  1. LYRICA [Suspect]
     Indication: NEURALGIA
     Dosage: UNK
  2. MOTRIN [Concomitant]
     Indication: MUSCULOSKELETAL PAIN
  3. PERCOCET [Concomitant]
     Indication: MUSCULOSKELETAL PAIN
     Dosage: UNK
  4. CORTICOSTEROIDS [Concomitant]
     Indication: MUSCULOSKELETAL PAIN
  5. DILAUDID [Concomitant]
     Indication: MUSCULOSKELETAL PAIN
  6. ACETYLSALICYLIC ACID [Concomitant]
     Indication: MUSCULOSKELETAL PAIN

REACTIONS (1)
  - BURNING SENSATION [None]
